FAERS Safety Report 8502363-4 (Version None)
Quarter: 2012Q3

REPORT INFORMATION
  Report Type: 
  Country: None (occurrence: None)
  Receive Date: 20120711
  Receipt Date: 20120629
  Transmission Date: 20120928
  Serious: Yes (Hospitalization)
  Sender: FDA-Public Use
  Company Number: US-BAYER-2012-029477

PATIENT
  Age: 39 Year
  Sex: Female
  Weight: 65.76 kg

DRUGS (8)
  1. YASMIN [Suspect]
     Dosage: UNK
     Dates: start: 20040101, end: 20040501
  2. YASMIN [Suspect]
     Dosage: UNK
     Dates: start: 20040801, end: 20060901
  3. YAZ [Suspect]
     Dosage: UNK
     Dates: start: 20061001
  4. YASMIN [Suspect]
     Dosage: UNK
     Dates: start: 20061101, end: 20100201
  5. NSAID'S [Concomitant]
  6. YASMIN [Suspect]
     Dosage: UNK
     Dates: start: 20020201, end: 20021101
  7. NASONEX [Concomitant]
  8. LEVAQUIN [Concomitant]
     Indication: BRONCHITIS

REACTIONS (3)
  - PULMONARY EMBOLISM [None]
  - PAIN [None]
  - INJURY [None]
